FAERS Safety Report 9107822 (Version 3)
Quarter: 2013Q2

REPORT INFORMATION
  Report Type: Spontaneous
  Country: US (occurrence: US)
  Receive Date: 20130221
  Receipt Date: 20130610
  Transmission Date: 20140414
  Serious: Yes (Hospitalization)
  Sender: FDA-Public Use
  Company Number: US-BIOGENIDEC-2013BI016076

PATIENT
  Age: 53 Year
  Sex: Female

DRUGS (6)
  1. AVONEX [Suspect]
     Indication: RELAPSING-REMITTING MULTIPLE SCLEROSIS
     Route: 030
     Dates: start: 20100622, end: 20110708
  2. AVONEX [Suspect]
     Indication: RELAPSING-REMITTING MULTIPLE SCLEROSIS
     Route: 030
     Dates: start: 20120522, end: 201206
  3. AVONEX [Suspect]
     Indication: RELAPSING-REMITTING MULTIPLE SCLEROSIS
     Route: 030
     Dates: start: 201206
  4. PREDNISONE [Concomitant]
     Indication: MULTIPLE SCLEROSIS
     Route: 042
  5. SOLUMEDROL [Concomitant]
     Indication: MULTIPLE SCLEROSIS
     Route: 042
  6. ACTHAR GEL [Concomitant]
     Indication: MULTIPLE SCLEROSIS

REACTIONS (27)
  - Spinal column stenosis [Unknown]
  - Intervertebral disc protrusion [Unknown]
  - Spinal disorder [Unknown]
  - Oedema [Not Recovered/Not Resolved]
  - Joint swelling [Not Recovered/Not Resolved]
  - Gait disturbance [Not Recovered/Not Resolved]
  - Mouth breathing [Not Recovered/Not Resolved]
  - Memory impairment [Not Recovered/Not Resolved]
  - Laryngitis [Unknown]
  - Fall [Recovered/Resolved]
  - Back pain [Not Recovered/Not Resolved]
  - Speech disorder [Recovered/Resolved]
  - Local swelling [Not Recovered/Not Resolved]
  - Automatic bladder [Not Recovered/Not Resolved]
  - Altered visual depth perception [Not Recovered/Not Resolved]
  - Protein total decreased [Unknown]
  - Adrenal insufficiency [Unknown]
  - Concussion [Unknown]
  - Hypothalamo-pituitary disorder [Unknown]
  - Multiple sclerosis [Not Recovered/Not Resolved]
  - Pain [Not Recovered/Not Resolved]
  - Multiple sclerosis relapse [Not Recovered/Not Resolved]
  - Bone pain [Not Recovered/Not Resolved]
  - Musculoskeletal stiffness [Not Recovered/Not Resolved]
  - Drug ineffective [Recovered/Resolved]
  - Influenza like illness [Recovered/Resolved]
  - Arthralgia [Not Recovered/Not Resolved]
